FAERS Safety Report 9615621 (Version 1)
Quarter: 2013Q4

REPORT INFORMATION
  Report Type: Spontaneous
  Country: US (occurrence: US)
  Receive Date: 20131011
  Receipt Date: 20131011
  Transmission Date: 20140711
  Serious: No
  Sender: FDA-Public Use
  Company Number: US-BAYER-2013-122827

PATIENT
  Sex: Female

DRUGS (5)
  1. ALEVE CAPLET [Suspect]
     Dosage: UNK UNK, UNK
  2. IBUPROFEN [Suspect]
  3. MOTRIN [Suspect]
  4. NAPROXEN [Suspect]
  5. ADVIL [Suspect]

REACTIONS (2)
  - Dyspepsia [None]
  - Abdominal discomfort [None]
